FAERS Safety Report 12142441 (Version 1)
Quarter: 2016Q1

REPORT INFORMATION
  Report Type: Spontaneous
  Country: GB (occurrence: GB)
  Receive Date: 20160303
  Receipt Date: 20160303
  Transmission Date: 20160526
  Serious: Yes (Hospitalization)
  Sender: FDA-Public Use
  Company Number: GB-CELGENE-GBR-2015104009

PATIENT
  Age: 64 Year
  Sex: Male
  Weight: 85.5 kg

DRUGS (5)
  1. CLINDAMYCIN [Concomitant]
     Active Substance: CLINDAMYCIN\CLINDAMYCIN PHOSPHATE
     Indication: PROPHYLAXIS
     Route: 065
     Dates: start: 20150725
  2. PF-04449913 [Concomitant]
     Active Substance: GLASDEGIB
     Indication: MYELODYSPLASTIC SYNDROME
     Route: 048
     Dates: start: 20150707, end: 20150731
  3. PF-04449913 [Concomitant]
     Active Substance: GLASDEGIB
     Route: 048
     Dates: start: 20150707
  4. AZACITIDINE. [Suspect]
     Active Substance: AZACITIDINE
     Route: 058
     Dates: start: 20150706, end: 20150712
  5. AZACITIDINE. [Suspect]
     Active Substance: AZACITIDINE
     Indication: MYELODYSPLASTIC SYNDROME
     Route: 058
     Dates: start: 20150706, end: 20150712

REACTIONS (4)
  - Osteomyelitis [Recovered/Resolved]
  - Neutropenic sepsis [Recovered/Resolved]
  - Acute respiratory distress syndrome [Recovered/Resolved]
  - Respiratory tract infection [Recovered/Resolved]

NARRATIVE: CASE EVENT DATE: 20150725
